FAERS Safety Report 6337145-5 (Version None)
Quarter: 2009Q3

REPORT INFORMATION
  Report Type: 
  Country: None (occurrence: None)
  Receive Date: 20090831
  Receipt Date: 20090820
  Transmission Date: 20100115
  Serious: Yes (Death)
  Sender: FDA-Public Use
  Company Number: GXKR2009GB09413

PATIENT
  Age: 86 Year
  Sex: Female

DRUGS (15)
  1. CEFUROXIME [Suspect]
     Indication: PNEUMONIA ASPIRATION
     Dosage: 750 MG, TID, INTRAVENOUS
     Route: 042
     Dates: start: 20060124
  2. METRONIDAZOLE [Suspect]
     Indication: PNEUMONIA ASPIRATION
     Dosage: 500 MG, TID, INTRAVENOUS
     Route: 042
     Dates: start: 20060124
  3. ASPIRIN [Concomitant]
  4. CALCICHEW D3 (CALCIUM CARBONATE, COLECALCIFEROL) [Concomitant]
  5. CALCIUM (CALCIUM) [Concomitant]
  6. CETIRIZINE [Concomitant]
  7. FLUCONAZOLE [Concomitant]
  8. LANSOPRAZOLE [Concomitant]
  9. MADOPAR (BENSERAZIDE HYDROCHLORIDE, LEVODOPA) [Concomitant]
  10. MAGNESIUM HYDROXIDE TAB [Concomitant]
  11. NYSTATIN [Concomitant]
  12. PARACETAMOL (PARACETAMOL) [Concomitant]
  13. POTASSIUM CHLORIDE [Concomitant]
  14. SENNA (SENNA, SENNA ALEXANDRINA) [Concomitant]
  15. VITAMIN D [Concomitant]

REACTIONS (1)
  - CLOSTRIDIUM DIFFICILE COLITIS [None]
